FAERS Safety Report 4864448-3 (Version None)
Quarter: 2005Q4

REPORT INFORMATION
  Report Type: 
  Country: None (occurrence: None)
  Receive Date: 20051221
  Receipt Date: 20051221
  Transmission Date: 20060501
  Serious: No
  Sender: FDA-Public Use
  Company Number: None

PATIENT
  Age: 75 Year
  Sex: Male
  Weight: 85.2762 kg

DRUGS (1)
  1. METFORMIN [Suspect]
     Indication: DIABETES MELLITUS NON-INSULIN-DEPENDENT
     Dosage: 2 TABLETS  BID
     Dates: start: 20051201

REACTIONS (2)
  - BLOOD GLUCOSE FLUCTUATION [None]
  - PHARMACEUTICAL PRODUCT COMPLAINT [None]
